FAERS Safety Report 4515198-4 (Version None)
Quarter: 2004Q4

REPORT INFORMATION
  Report Type: 
  Country: None (occurrence: None)
  Receive Date: 20041201
  Receipt Date: 20041025
  Transmission Date: 20050328
  Serious: Yes (Other)
  Sender: FDA-Public Use
  Company Number: JP-GLAXOSMITHKLINE-B0349721A

PATIENT
  Age: 51 Year
  Sex: Female
  Weight: 65 kg

DRUGS (7)
  1. ZANTAC [Suspect]
     Dosage: 50MG PER DAY
     Route: 042
     Dates: start: 20040924, end: 20040924
  2. ZOFRAN [Suspect]
     Route: 042
     Dates: start: 20041008, end: 20041008
  3. KYTRIL [Suspect]
     Dosage: 3MG SINGLE DOSE
     Route: 042
     Dates: start: 20040924, end: 20040924
  4. VENA [Concomitant]
     Dosage: 3TAB WEEKLY
     Route: 048
  5. DECADRON [Concomitant]
     Dosage: 8MG PER DAY
     Route: 042
     Dates: start: 20040924
  6. ISOTONIC SODIUM CHLORIDE [Concomitant]
     Route: 042
  7. TAXOL [Concomitant]
     Indication: CHEMOTHERAPY

REACTIONS (7)
  - ANAPHYLACTIC SHOCK [None]
  - COLD SWEAT [None]
  - FEELING ABNORMAL [None]
  - HYPERHIDROSIS [None]
  - HYPOTENSION [None]
  - NAUSEA [None]
  - VOMITING [None]
